FAERS Safety Report 5505683-0 (Version None)
Quarter: 2007Q4

REPORT INFORMATION
  Report Type: 
  Country: None (occurrence: None)
  Receive Date: 20071102
  Receipt Date: 20071026
  Transmission Date: 20080405
  Serious: Yes (Other)
  Sender: FDA-Public Use
  Company Number: AR-PFIZER INC-2007080152

PATIENT
  Age: 69 Year
  Sex: Male

DRUGS (2)
  1. ZOLOFT [Suspect]
     Indication: DEPRESSION
     Route: 048
     Dates: start: 20070919, end: 20071003
  2. ZOLOFT [Suspect]
     Indication: ANXIETY

REACTIONS (2)
  - MACULAR OEDEMA [None]
  - VISION BLURRED [None]
